FAERS Safety Report 18686501 (Version 1)
Quarter: 2020Q4

REPORT INFORMATION
  Report Type: Spontaneous
  Country: GB (occurrence: GB)
  Receive Date: 20201230
  Receipt Date: 20201230
  Transmission Date: 20210114
  Serious: Yes (Other)
  Sender: FDA-Public Use
  Company Number: GB-SUNOVION-2020SUN003880

PATIENT

DRUGS (4)
  1. MIRTAZAPINE. [Concomitant]
     Active Substance: MIRTAZAPINE
     Dosage: UNK
  2. LATUDA [Suspect]
     Active Substance: LURASIDONE HYDROCHLORIDE
     Dosage: UNK, REDUCED
     Route: 048
  3. LATUDA [Suspect]
     Active Substance: LURASIDONE HYDROCHLORIDE
     Dosage: 74 MG
     Route: 048
  4. LATUDA [Suspect]
     Active Substance: LURASIDONE HYDROCHLORIDE
     Indication: DEPRESSED MOOD
     Dosage: 74 MG
     Route: 048

REACTIONS (8)
  - Acute psychosis [Unknown]
  - Suspiciousness [Unknown]
  - Restlessness [Unknown]
  - Anxiety [Unknown]
  - Stress [Unknown]
  - Hypervigilance [Unknown]
  - Akathisia [Unknown]
  - Off label use [Unknown]
